FAERS Safety Report 6295207-5 (Version None)
Quarter: 2009Q3

REPORT INFORMATION
  Report Type: 
  Country: None (occurrence: None)
  Receive Date: 20090803
  Receipt Date: 20090724
  Transmission Date: 20100115
  Serious: Yes (Other)
  Sender: FDA-Public Use
  Company Number: US-ABBOTT-09P-163-0587430-00

PATIENT
  Sex: Female
  Weight: 65.83 kg

DRUGS (3)
  1. LUPRON DEPOT [Suspect]
     Indication: PELVIC PAIN
     Route: 030
     Dates: start: 20090301, end: 20090401
  2. CYMBALTA [Concomitant]
     Indication: TRIGEMINAL NEURALGIA
     Dates: end: 20090501
  3. ACCUTANE [Concomitant]
     Indication: ACNE
     Dates: end: 20090501

REACTIONS (10)
  - ADHESION [None]
  - ALOPECIA [None]
  - AMNESIA [None]
  - GAIT DISTURBANCE [None]
  - HOT FLUSH [None]
  - INSOMNIA [None]
  - MUSCULAR WEAKNESS [None]
  - NIGHT SWEATS [None]
  - ONYCHOCLASIS [None]
  - PELVIC PAIN [None]
